FAERS Safety Report 5694037-2 (Version None)
Quarter: 2008Q2

REPORT INFORMATION
  Report Type: 
  Country: None (occurrence: None)
  Receive Date: 20080401
  Receipt Date: 20060516
  Transmission Date: 20081010
  Serious: Yes (Hospitalization)
  Sender: FDA-Public Use
  Company Number: CHNY2006FR01587

PATIENT
  Age: 19 Year
  Sex: Female

DRUGS (1)
  1. SCOPODERM TTS (NCH)(HYOSCINE HYDROBROMIDE) TRANS-THERAPEUTIC-SYSTEM [Suspect]
     Dosage: 1 DF, ONCE/SINGLE, TRANSDERMAL
     Route: 062
     Dates: start: 20060214, end: 20060214

REACTIONS (2)
  - ERYTHEMA [None]
  - URTICARIA [None]
